FAERS Safety Report 17694686 (Version 1)
Quarter: 2020Q2

REPORT INFORMATION
  Report Type: Spontaneous
  Country: CN (occurrence: CN)
  Receive Date: 20200422
  Receipt Date: 20200422
  Transmission Date: 20200714
  Serious: Yes (Hospitalization, Other)
  Sender: FDA-Public Use
  Company Number: CN-FRESENIUS KABI-FK202003975

PATIENT
  Age: 49 Year
  Sex: Female
  Weight: 50 kg

DRUGS (1)
  1. VOLUVEN [Suspect]
     Active Substance: HYDROXYETHYL STARCH 130/0.4
     Indication: BLOOD VOLUME EXPANSION
     Dosage: 500 ML/DAY
     Route: 041
     Dates: start: 20200408, end: 20200409

REACTIONS (4)
  - Pallor [Recovering/Resolving]
  - Infusion related reaction [Recovering/Resolving]
  - Body temperature increased [Recovering/Resolving]
  - Chills [Recovering/Resolving]

NARRATIVE: CASE EVENT DATE: 20200409
